FAERS Safety Report 18307621 (Version 3)
Quarter: 2021Q1

REPORT INFORMATION
  Report Type: Spontaneous
  Country: US (occurrence: US)
  Receive Date: 20200924
  Receipt Date: 20210322
  Transmission Date: 20210419
  Serious: No
  Sender: FDA-Public Use
  Company Number: US-PFIZER INC-2020365325

PATIENT
  Age: 54 Year
  Sex: Male

DRUGS (1)
  1. XELJANZ [Suspect]
     Active Substance: TOFACITINIB CITRATE
     Dosage: 5 MG

REACTIONS (1)
  - Arthralgia [Recovering/Resolving]
